FAERS Safety Report 19430086 (Version 5)
Quarter: 2021Q3

REPORT INFORMATION
  Report Type: Spontaneous
  Country: JP (occurrence: JP)
  Receive Date: 20210617
  Receipt Date: 20210827
  Transmission Date: 20211014
  Serious: Yes (Other)
  Sender: FDA-Public Use
  Company Number: JP-ASTRAZENECA-2021A527666

PATIENT
  Age: 71 Year
  Sex: Female

DRUGS (2)
  1. FORXIGA [Suspect]
     Active Substance: DAPAGLIFLOZIN
     Indication: TYPE 2 DIABETES MELLITUS
     Dosage: DOSE UNKNOWN
     Route: 048
  2. FORXIGA [Suspect]
     Active Substance: DAPAGLIFLOZIN
     Indication: TYPE 2 DIABETES MELLITUS
     Dosage: DOSE UNKNOWN
     Route: 048

REACTIONS (7)
  - Procedural dizziness [Recovered/Resolved]
  - Dizziness [Recovered/Resolved]
  - Diabetes mellitus inadequate control [Recovered/Resolved]
  - Dysstasia [Recovered/Resolved]
  - Cardiac failure [Recovered/Resolved]
  - Cardiac output decreased [Recovered/Resolved]
  - Cardiac valve disease [Recovered/Resolved]
